FAERS Safety Report 23410867 (Version 1)
Quarter: 2024Q1

REPORT INFORMATION
  Report Type: Spontaneous
  Country: ES (occurrence: ES)
  Receive Date: 20240117
  Receipt Date: 20240117
  Transmission Date: 20240410
  Serious: Yes (Other)
  Sender: FDA-Public Use
  Company Number: None

PATIENT
  Age: 43 Year
  Sex: Male

DRUGS (3)
  1. ADALIMUMAB [Suspect]
     Active Substance: ADALIMUMAB\ISOPROPYL ALCOHOL
     Indication: Spinal osteoarthritis
     Dosage: 40.0 MG EVERY 14 DAYS
     Route: 058
     Dates: start: 20210702, end: 20231204
  2. ACETAMINOPHEN\TRAMADOL [Concomitant]
     Active Substance: ACETAMINOPHEN\TRAMADOL
     Indication: Spinal osteoarthritis
     Dosage: 1.0 COMP C/12 H AND CINFA 37.5 MG/325 MG EFG FILM-COATED TABLETS, 60 TABLETS
     Route: 048
     Dates: start: 20230809
  3. HYDROCHLOROTHIAZIDE\OLMESARTAN MEDOXOMIL [Concomitant]
     Active Substance: HYDROCHLOROTHIAZIDE\OLMESARTAN MEDOXOMIL
     Indication: Hypertension
     Dosage: 20.0 MG DE AND 20 MG/12.5 MG FILM-COATED TABLETS, 28 TABLETS
     Route: 048
     Dates: start: 20231130

REACTIONS (2)
  - Renal failure [Unknown]
  - Product use in unapproved indication [Unknown]

NARRATIVE: CASE EVENT DATE: 20230718
